FAERS Safety Report 10111040 (Version 1)
Quarter: 2014Q2

REPORT INFORMATION
  Report Type: Spontaneous
  Country: US (occurrence: None)
  Receive Date: 20140424
  Receipt Date: 20140424
  Transmission Date: 20141212
  Serious: Yes (Disabling)
  Sender: FDA-Public Use
  Company Number: None

PATIENT
  Age: 65 Year
  Sex: Female
  Weight: 61.24 kg

DRUGS (2)
  1. ESTRADIOL 1 MG [Suspect]
     Indication: OESTROGEN THERAPY
     Dosage: 1  MOUTH
     Route: 048
     Dates: start: 20131101, end: 20131115
  2. ESTRADIOL 1 MG [Suspect]
     Indication: PRODUCT USED FOR UNKNOWN INDICATION
     Dosage: 1  MOUTH
     Route: 048
     Dates: start: 20131101, end: 20131115

REACTIONS (3)
  - Insomnia [None]
  - Cognitive disorder [None]
  - Product substitution issue [None]
